FAERS Safety Report 21032722 (Version 3)
Quarter: 2023Q4

REPORT INFORMATION
  Report Type: Report from Study
  Country: CH (occurrence: CH)
  Receive Date: 20220701
  Receipt Date: 20231018
  Transmission Date: 20240109
  Serious: Yes (Death)
  Sender: FDA-Public Use
  Company Number: CH-NOVARTISPH-NVSC2020CH222491

PATIENT
  Age: 48 Year
  Sex: Female
  Weight: 95 kg

DRUGS (3)
  1. KISQALI [Suspect]
     Active Substance: RIBOCICLIB
     Indication: Breast cancer
     Dosage: 600 MG, 3W ON 1W OFF
     Route: 048
     Dates: start: 20200424, end: 20200524
  2. KISQALI [Suspect]
     Active Substance: RIBOCICLIB
     Dosage: 400 MG, 3W ON 1W OFF
     Route: 048
     Dates: start: 20200525, end: 20200602
  3. KISQALI [Suspect]
     Active Substance: RIBOCICLIB
     Dosage: 600 MG, 3W ON 1W OFF
     Route: 048
     Dates: start: 20200603, end: 20201015

REACTIONS (5)
  - Breast cancer [Fatal]
  - Malignant neoplasm progression [Fatal]
  - Hypoalbuminaemia [Fatal]
  - Generalised oedema [Fatal]
  - Epigastric discomfort [Recovered/Resolved]

NARRATIVE: CASE EVENT DATE: 20200524
